FAERS Safety Report 14767835 (Version 1)
Quarter: 2018Q2

REPORT INFORMATION
  Report Type: Spontaneous
  Country: US (occurrence: US)
  Receive Date: 20180410
  Receipt Date: 20180410
  Transmission Date: 20180711
  Serious: Yes (Hospitalization)
  Sender: FDA-Public Use
  Company Number: None

PATIENT
  Age: 71 Year
  Sex: Female

DRUGS (11)
  1. PREDNISONE (ACTAVIS) [Concomitant]
     Active Substance: PREDNISONE
     Dates: start: 20180216
  2. FLAGYL [Concomitant]
     Active Substance: METRONIDAZOLE\METRONIDAZOLE HYDROCHLORIDE
     Dates: start: 20180308, end: 20180316
  3. VALTREX [Concomitant]
     Active Substance: VALACYCLOVIR HYDROCHLORIDE
     Dates: start: 20180216
  4. LASIX [Concomitant]
     Active Substance: FUROSEMIDE
     Dates: start: 20180302
  5. LEVOTHYROXINE (LANNETT) [Concomitant]
     Dates: start: 20171201
  6. BACTRIM [Concomitant]
     Active Substance: SULFAMETHOXAZOLE\TRIMETHOPRIM
     Dates: start: 20180216
  7. CALCITRIOL (TEVA) [Concomitant]
     Dates: start: 20160801
  8. DIFLUCAN [Concomitant]
     Active Substance: FLUCONAZOLE
     Dates: start: 20180330
  9. TACROLIMUS. [Suspect]
     Active Substance: TACROLIMUS
     Indication: ORGAN TRANSPLANT
     Route: 048
     Dates: start: 20180216, end: 20180410
  10. MYCOPHENOLIC [Suspect]
     Active Substance: MYCOPHENOLIC ACID
     Indication: ORGAN TRANSPLANT
     Route: 048
     Dates: start: 20180216, end: 20180410
  11. PEPCID [Concomitant]
     Active Substance: FAMOTIDINE
     Dates: start: 20180216

REACTIONS (2)
  - Clostridium difficile infection [None]
  - Infection [None]

NARRATIVE: CASE EVENT DATE: 20180307
